FAERS Safety Report 4433213-3 (Version None)
Quarter: 2004Q3

REPORT INFORMATION
  Report Type: 
  Country: None (occurrence: None)
  Receive Date: 20040823
  Receipt Date: 20040818
  Transmission Date: 20050211
  Serious: Yes (Life-Threatening)
  Sender: FDA-Public Use
  Company Number: 2004-119302-NL

PATIENT
  Age: 58 Year
  Sex: Female

DRUGS (1)
  1. MIRTAZAPINE [Suspect]
     Indication: DEPRESSION
     Dosage: 45 MG QD
     Route: 048
     Dates: start: 20040501, end: 20040811

REACTIONS (3)
  - CARDIAC FAILURE ACUTE [None]
  - GRAVITATIONAL OEDEMA [None]
  - PULMONARY OEDEMA [None]
